FAERS Safety Report 22902564 (Version 4)
Quarter: 2023Q4

REPORT INFORMATION
  Report Type: Spontaneous
  Country: JP (occurrence: JP)
  Receive Date: 20230904
  Receipt Date: 20231006
  Transmission Date: 20240110
  Serious: Yes (Other)
  Sender: FDA-Public Use
  Company Number: JP-AMGEN-JPNSP2023113982

PATIENT
  Sex: Male

DRUGS (6)
  1. BLINCYTO [Suspect]
     Active Substance: BLINATUMOMAB
     Indication: B precursor type acute leukaemia
     Dosage: 9 MICROGRAM, DRIP INFUSION
     Route: 042
     Dates: start: 20230628, end: 2023
  2. BLINCYTO [Suspect]
     Active Substance: BLINATUMOMAB
     Dosage: UNK, DRIP INFUSION
     Route: 042
     Dates: start: 20230705, end: 2023
  3. BLINCYTO [Suspect]
     Active Substance: BLINATUMOMAB
     Dosage: UNK, DRIP INFUSION
     Route: 042
     Dates: start: 20230809, end: 20230905
  4. BLINCYTO [Suspect]
     Active Substance: BLINATUMOMAB
     Dosage: UNK, DRIP INFUSION
     Route: 042
     Dates: start: 20230920, end: 20230927
  5. ICLUSIG [Concomitant]
     Active Substance: PONATINIB
     Dosage: 30 MILLIGRAM
     Dates: start: 20230628
  6. ICLUSIG [Concomitant]
     Active Substance: PONATINIB
     Dosage: 15 MILLIGRAM
     Dates: start: 20230920

REACTIONS (4)
  - Leukaemic infiltration extramedullary [Recovered/Resolved]
  - Cytokine release syndrome [Recovering/Resolving]
  - Neutrophil count decreased [Recovering/Resolving]
  - Platelet count decreased [Recovering/Resolving]

NARRATIVE: CASE EVENT DATE: 20230629
